FAERS Safety Report 13928576 (Version 1)
Quarter: 2017Q3

REPORT INFORMATION
  Report Type: Spontaneous
  Country: US (occurrence: US)
  Receive Date: 20170901
  Receipt Date: 20170901
  Transmission Date: 20171127
  Serious: Yes (Death, Life-Threatening, Hospitalization)
  Sender: FDA-Public Use
  Company Number: US-IPSEN BIOPHARMACEUTICALS, INC.-2010-4206

PATIENT
  Age: 2 Year
  Sex: Female
  Weight: 10 kg

DRUGS (14)
  1. INSULIN [Concomitant]
     Active Substance: INSULIN NOS
     Route: 058
  2. UREA. [Concomitant]
     Active Substance: UREA
  3. INSULIN [Concomitant]
     Active Substance: INSULIN NOS
     Indication: BLOOD KETONE BODY
     Route: 058
  4. PREVACID [Concomitant]
     Active Substance: LANSOPRAZOLE
  5. MVI [Concomitant]
     Active Substance: VITAMINS
  6. INCRELEX [Suspect]
     Active Substance: MECASERMIN
     Dosage: 800 UG/KG/DAY
     Route: 058
     Dates: start: 2010, end: 2010
  7. INCRELEX [Suspect]
     Active Substance: MECASERMIN
     Indication: AUTOSOMAL CHROMOSOME ANOMALY
     Route: 058
     Dates: start: 20090427, end: 2010
  8. INCRELEX [Suspect]
     Active Substance: MECASERMIN
     Dosage: 1200 UG/KG/DAY
     Route: 058
     Dates: start: 2010, end: 20100916
  9. MIRALAX [Concomitant]
     Active Substance: POLYETHYLENE GLYCOL 3350
  10. INCRELEX [Suspect]
     Active Substance: MECASERMIN
     Dosage: 640 UG/KG/DAY
     Route: 058
     Dates: start: 2010, end: 2010
  11. INCRELEX [Suspect]
     Active Substance: MECASERMIN
     Indication: OFF LABEL USE
     Route: 058
     Dates: start: 2010, end: 2010
  12. RIOMET [Concomitant]
     Active Substance: METFORMIN HYDROCHLORIDE
  13. LACTULOSE. [Concomitant]
     Active Substance: LACTULOSE
  14. BACTRIM [Concomitant]
     Active Substance: SULFAMETHOXAZOLE\TRIMETHOPRIM

REACTIONS (11)
  - Drug administered in wrong device [Unknown]
  - Polycystic ovaries [Unknown]
  - Ovarian granulosa-theca cell tumour [Not Recovered/Not Resolved]
  - Therapeutic response unexpected [Unknown]
  - Abdominal distension [Not Recovered/Not Resolved]
  - Off label use [Unknown]
  - Acute respiratory distress syndrome [Fatal]
  - Respiratory tract infection [Unknown]
  - Product use issue [Unknown]
  - Condition aggravated [Unknown]
  - Drug ineffective for unapproved indication [Unknown]

NARRATIVE: CASE EVENT DATE: 2010
